FAERS Safety Report 17073699 (Version 1)
Quarter: 2019Q4

REPORT INFORMATION
  Report Type: Spontaneous
  Country: FR (occurrence: FR)
  Receive Date: 20191126
  Receipt Date: 20191126
  Transmission Date: 20200122
  Serious: Yes (Death, Hospitalization)
  Sender: FDA-Public Use
  Company Number: FR-ROCHE-2472927

PATIENT
  Age: 62 Year
  Sex: Male
  Weight: 57.8 kg

DRUGS (15)
  1. FOLIC ACID. [Concomitant]
     Active Substance: FOLIC ACID
  2. VALGANCICLOVIR HYDROCHLORIDE. [Concomitant]
     Active Substance: VALGANCICLOVIR HYDROCHLORIDE
  3. ZITHROMAX [Concomitant]
     Active Substance: AZITHROMYCIN DIHYDRATE
  4. MODIGRAF [Concomitant]
     Active Substance: TACROLIMUS
     Route: 048
  5. VITAMIN K [Concomitant]
     Active Substance: PHYTONADIONE
  6. RIBAVIRIN. [Suspect]
     Active Substance: RIBAVIRIN
     Indication: HEPATITIS E
     Route: 048
     Dates: start: 20180802, end: 20181019
  7. CLOXACILLINE [CLOXACILLIN] [Concomitant]
     Active Substance: CLOXACILLIN
  8. ALBUMIN HUMAN [Concomitant]
     Active Substance: ALBUMIN HUMAN
  9. AZATHIOPRINE. [Concomitant]
     Active Substance: AZATHIOPRINE
  10. NOVORAPID [Concomitant]
     Active Substance: INSULIN ASPART
  11. TIXTAR [Concomitant]
     Active Substance: RIFAXIMIN
     Route: 065
  12. TERLIPRESSINE [TERLIPRESSIN] [Concomitant]
  13. NEORECORMON [Concomitant]
     Active Substance: ERYTHROPOIETIN
     Route: 065
  14. DUPHALAC [Concomitant]
     Active Substance: LACTULOSE
  15. ABASAGLAR [Concomitant]
     Active Substance: INSULIN GLARGINE
     Route: 065

REACTIONS (2)
  - Cytopenia [Not Recovered/Not Resolved]
  - Liver disorder [Not Recovered/Not Resolved]

NARRATIVE: CASE EVENT DATE: 201810
